FAERS Safety Report 6192451-2 (Version None)
Quarter: 2009Q2

REPORT INFORMATION
  Report Type: 
  Country: None (occurrence: None)
  Receive Date: 20090513
  Receipt Date: 20090513
  Transmission Date: 20091009
  Serious: Yes (Life-Threatening)
  Sender: FDA-Public Use
  Company Number: None

PATIENT
  Sex: Male
  Weight: 106.5953 kg

DRUGS (2)
  1. BENICAR HCT [Suspect]
     Indication: HYPERTENSION
     Dosage: 1 TAB DAILY P.O
     Route: 048
     Dates: start: 20050101, end: 20090423
  2. DIOVAN [Suspect]
     Indication: HYPERTENSION
     Dosage: 1 TAB DAILY P.O (DATES OF USE: PRE 2003 - 2005)
     Route: 048
     Dates: start: 20030101, end: 20050101

REACTIONS (9)
  - ASTHENIA [None]
  - BONE NEOPLASM MALIGNANT [None]
  - CHROMATURIA [None]
  - GAIT DISTURBANCE [None]
  - HYDROCEPHALUS [None]
  - MUSCULOSKELETAL DISORDER [None]
  - PRURITUS [None]
  - RENAL DISORDER [None]
  - URINE ABNORMALITY [None]
